FAERS Safety Report 8322467 (Version 19)
Quarter: 2014Q1

REPORT INFORMATION
  Report Type: Report from Study
  Country: CA (occurrence: CA)
  Receive Date: 20120105
  Receipt Date: 20140115
  Transmission Date: 20141002
  Serious: Yes (Hospitalization, Other)
  Sender: FDA-Public Use
  Company Number: PHHY2011CA15725

PATIENT
  Age: 77 Year
  Sex: Female

DRUGS (8)
  1. SANDOSTATIN LAR [Suspect]
     Indication: METASTATIC CARCINOID TUMOUR
     Dosage: 30 MG, EVERY 4 WEEKS
     Route: 030
     Dates: start: 20110218
  2. SANDOSTATIN LAR [Suspect]
     Dosage: 40 MG, EVERY 4 WEEKS
     Route: 030
     Dates: start: 20110218
  3. SANDOSTATIN LAR [Suspect]
     Dosage: 40 MG, EVERY 4 WEEKS
     Route: 030
     Dates: start: 20110528
  4. SANDOSTATIN LAR [Suspect]
     Dosage: 40 MG, QMO
     Route: 030
  5. SANDOSTATIN LAR [Suspect]
     Dosage: 30 MG, QMO
     Route: 030
     Dates: start: 20110629
  6. SANDOSTATIN LAR [Suspect]
     Dosage: 40 MG, QMO
     Route: 030
  7. SANDOSTATIN LAR [Suspect]
     Dosage: 40 MG, QMO
     Route: 030
     Dates: start: 20110528
  8. GRAVOL [Concomitant]
     Dosage: UNK UKN, UNK

REACTIONS (46)
  - Cardiac arrest [Unknown]
  - Neoplasm progression [Unknown]
  - Syncope [Recovered/Resolved]
  - Avulsion fracture [Unknown]
  - Ankle fracture [Unknown]
  - Hepatic neoplasm [Unknown]
  - Breast cancer [Unknown]
  - Gastrointestinal carcinoma [Unknown]
  - Schizophrenia [Unknown]
  - Loss of consciousness [Unknown]
  - Bone disorder [Unknown]
  - Swelling [Unknown]
  - Influenza like illness [Recovered/Resolved]
  - Local swelling [Not Recovered/Not Resolved]
  - Feeling cold [Recovered/Resolved]
  - Night sweats [Unknown]
  - Rhinorrhoea [Unknown]
  - Pain [Unknown]
  - Pain in jaw [Unknown]
  - Pain in extremity [Not Recovered/Not Resolved]
  - Osteoarthritis [Unknown]
  - Musculoskeletal pain [Unknown]
  - Limb injury [Unknown]
  - Injury [Unknown]
  - Arthralgia [Unknown]
  - Hepatic pain [Unknown]
  - Suspiciousness [Unknown]
  - Somnolence [Unknown]
  - Blood electrolytes abnormal [Unknown]
  - Pyrexia [Recovered/Resolved]
  - Syringe issue [Unknown]
  - Mental disorder [Unknown]
  - 5-hydroxyindolacetic acid decreased [Unknown]
  - Wrong technique in drug usage process [Unknown]
  - Injection site haemorrhage [Recovered/Resolved]
  - Abdominal pain upper [Unknown]
  - Diarrhoea [Recovered/Resolved]
  - Flatulence [Unknown]
  - Headache [Recovered/Resolved]
  - Constipation [Unknown]
  - Fatigue [Unknown]
  - Faeces discoloured [Unknown]
  - Nausea [Unknown]
  - Dizziness [Recovering/Resolving]
  - Rash [Unknown]
  - Injection site pain [Unknown]
